FAERS Safety Report 6035603-4 (Version None)
Quarter: 2009Q1

REPORT INFORMATION
  Report Type: 
  Country: None (occurrence: None)
  Receive Date: 20090113
  Receipt Date: 20090105
  Transmission Date: 20090719
  Serious: Yes (Hospitalization)
  Sender: FDA-Public Use
  Company Number: PHHY2009CN00908

PATIENT
  Sex: Female
  Weight: 43 kg

DRUGS (1)
  1. DICLOFENAC SODIUM [Suspect]
     Indication: DYSMENORRHOEA
     Dosage: 75 MG
     Route: 048
     Dates: start: 20081229, end: 20081229

REACTIONS (6)
  - ABDOMINAL PAIN [None]
  - DIARRHOEA [None]
  - GASTROENTERITIS [None]
  - NEUTROPHIL COUNT INCREASED [None]
  - OCCULT BLOOD [None]
  - VOMITING [None]
